FAERS Safety Report 5863868-8 (Version None)
Quarter: 2008Q3

REPORT INFORMATION
  Report Type: 
  Country: None (occurrence: None)
  Receive Date: 20080827
  Receipt Date: 20080812
  Transmission Date: 20090109
  Serious: Yes (Other)
  Sender: FDA-Public Use
  Company Number: 2008IP000057

PATIENT
  Age: 76 Year
  Sex: Female

DRUGS (13)
  1. BROMFENAC SODIUM [Suspect]
     Indication: CATARACT
     Dosage: 1 GTT; BID; OPH
     Route: 047
     Dates: start: 20080730, end: 20080804
  2. GATIFLOXACIN HYDRATE (CON.) [Concomitant]
  3. BETAMETHASONE SODIUM PHOSPHATE (CON.) [Concomitant]
  4. ENALAPRIL MALEATE (CON.) [Concomitant]
  5. AROTINOLOL HYDROCHLORIDE (CON.) [Concomitant]
  6. FLUVASTATIN SODIUM (CON.) [Concomitant]
  7. MECOBALAMIN (CON.) [Concomitant]
  8. LANSOPRAZOLE (CON.) [Concomitant]
  9. ASPIRIN (CON.) [Concomitant]
  10. ISOSORBIDE MONONITRATE (CON.) [Concomitant]
  11. DILTIAZEM HYDROCHLORIDE (CON.) [Concomitant]
  12. NITROGLYCERIN (CON.) [Concomitant]
  13. ACETAMINOPHEN (CON.) [Concomitant]

REACTIONS (2)
  - APPLICATION SITE REACTION [None]
  - SCLEROMALACIA [None]
